FAERS Safety Report 22192747 (Version 1)
Quarter: 2023Q2

REPORT INFORMATION
  Report Type: Spontaneous
  Country: US (occurrence: None)
  Receive Date: 20230410
  Receipt Date: 20230410
  Transmission Date: 20230721
  Serious: Yes (Death)
  Sender: FDA-Public Use
  Company Number: None

PATIENT
  Age: 75 Year
  Sex: Female
  Weight: 64.86 kg

DRUGS (14)
  1. IMATINIB [Suspect]
     Active Substance: IMATINIB
     Indication: Chronic myeloid leukaemia
     Dosage: OTHER QUANTITY : 200-400 DF;?FREQUENCY : DAILY;?
     Route: 048
  2. CARVEDILOL [Concomitant]
  3. ESCITALOPRAM [Concomitant]
     Active Substance: ESCITALOPRAM OXALATE
  4. FERROSUL [Concomitant]
  5. FOLIC ACID [Concomitant]
     Active Substance: FOLIC ACID
  6. LORAZEPAM [Concomitant]
  7. METFORMIN [Concomitant]
  8. PRAVASTATIN [Concomitant]
  9. PRESERVISIONS AREDS [Concomitant]
  10. TRAMADOL [Concomitant]
  11. TYLENOL [Concomitant]
  12. VITAMIN C [Concomitant]
     Active Substance: ASCORBIC ACID
  13. XARELTO [Concomitant]
  14. ZINC [Concomitant]
     Active Substance: ZINC

REACTIONS (1)
  - Death [None]

NARRATIVE: CASE EVENT DATE: 20230409
